FAERS Safety Report 6530177-3 (Version None)
Quarter: 2009Q4

REPORT INFORMATION
  Report Type: 
  Country: None (occurrence: None)
  Receive Date: 20091231
  Receipt Date: 20091222
  Transmission Date: 20100525
  Serious: Yes (Life-Threatening)
  Sender: FDA-Public Use
  Company Number: 2009SP043064

PATIENT
  Sex: Female

DRUGS (1)
  1. NUVARING [Suspect]
     Indication: DRUG USE FOR UNKNOWN INDICATION
     Dosage: VAG
     Route: 067
     Dates: start: 20070301, end: 20081001

REACTIONS (9)
  - ANHEDONIA [None]
  - ANXIETY [None]
  - DEEP VEIN THROMBOSIS [None]
  - EXTRADURAL HAEMATOMA [None]
  - FEAR [None]
  - MULTIPLE INJURIES [None]
  - MUSCULAR WEAKNESS [None]
  - PAIN [None]
  - PULMONARY EMBOLISM [None]
